FAERS Safety Report 8501073-7 (Version None)
Quarter: 2012Q3

REPORT INFORMATION
  Report Type: 
  Country: None (occurrence: None)
  Receive Date: 20120710
  Receipt Date: 20120706
  Transmission Date: 20120928
  Serious: Yes (Death)
  Sender: FDA-Public Use
  Company Number: DK-B.I. PHARMACEUTICALS,INC./RIDGEFIELD-2012-SW-00555DB

PATIENT
  Sex: Female
  Weight: 65 kg

DRUGS (1)
  1. PRADAXA [Suspect]
     Dosage: 220 MG
     Route: 048
     Dates: start: 20120615, end: 20120617

REACTIONS (1)
  - GASTROINTESTINAL HAEMORRHAGE [None]
